FAERS Safety Report 17781939 (Version 1)
Quarter: 2020Q2

REPORT INFORMATION
  Report Type: Spontaneous
  Country: US (occurrence: US)
  Receive Date: 20200513
  Receipt Date: 20200513
  Transmission Date: 20200714
  Serious: No
  Sender: FDA-Public Use
  Company Number: None

PATIENT
  Age: 60 Year
  Sex: Female
  Weight: 73.35 kg

DRUGS (11)
  1. VITMAIN C [Concomitant]
  2. BUTYRATE [Concomitant]
  3. MULTIVITAMIN [Concomitant]
     Active Substance: VITAMINS
  4. PROBIOTIC [Concomitant]
     Active Substance: PROBIOTICS NOS
  5. GLUTATHIONE [Concomitant]
     Active Substance: GLUTATHIONE
  6. ZOLOFT  50 MG [Concomitant]
  7. VITAMIN D [Concomitant]
     Active Substance: VITAMIN D NOS
  8. TEPEZZA [Suspect]
     Active Substance: TEPROTUMUMAB-TRBW
     Indication: EYE DISORDER
     Dosage: ?          OTHER FREQUENCY:EVERY 3 WEEKS;?
     Route: 042
     Dates: start: 20200426
  9. AMBIEN [Concomitant]
     Active Substance: ZOLPIDEM TARTRATE
  10. PREBIOTIC [Concomitant]
  11. ZINC. [Concomitant]
     Active Substance: ZINC

REACTIONS (1)
  - Tinnitus [None]

NARRATIVE: CASE EVENT DATE: 20200506
